FAERS Safety Report 14481656 (Version 1)
Quarter: 2018Q1

REPORT INFORMATION
  Report Type: Spontaneous
  Country: FR (occurrence: FR)
  Receive Date: 20180202
  Receipt Date: 20180202
  Transmission Date: 20180509
  Serious: Yes (Other)
  Sender: FDA-Public Use
  Company Number: FR-BAYER-2018-017272

PATIENT
  Age: 30 Year
  Sex: Female
  Weight: 96 kg

DRUGS (2)
  1. MIRENA [Suspect]
     Active Substance: LEVONORGESTREL
     Indication: CONTRACEPTION
     Dosage: 20 MCG/24HR, CONT
     Route: 015
     Dates: start: 20160119, end: 20170510
  2. MIRENA [Suspect]
     Active Substance: LEVONORGESTREL
     Indication: CONTRACEPTION

REACTIONS (7)
  - Anxiety [Unknown]
  - Alopecia [Unknown]
  - Affective disorder [Unknown]
  - Palpitations [Unknown]
  - Dyspareunia [Unknown]
  - Amenorrhoea [Unknown]
  - Coital bleeding [Unknown]

NARRATIVE: CASE EVENT DATE: 2016
